FAERS Safety Report 16185406 (Version 1)
Quarter: 2019Q2

REPORT INFORMATION
  Report Type: Spontaneous
  Country: US (occurrence: US)
  Receive Date: 20190411
  Receipt Date: 20190411
  Transmission Date: 20190711
  Serious: No
  Sender: FDA-Public Use
  Company Number: US-BAYER-2019-072795

PATIENT
  Age: 84 Year
  Sex: Male

DRUGS (2)
  1. BAYER ASPIRIN [Concomitant]
     Active Substance: ASPIRIN
  2. ALEVE [Suspect]
     Active Substance: NAPROXEN SODIUM
     Indication: PAIN
     Dosage: 2 DF, BID(2 CAPLETS EVERY 8 HOURS)
     Route: 048

REACTIONS (3)
  - Drug intolerance [Unknown]
  - Product use issue [Unknown]
  - Expired product administered [Unknown]
